FAERS Safety Report 10020056 (Version 2)
Quarter: 2014Q1

REPORT INFORMATION
  Report Type: Spontaneous
  Country: GB (occurrence: GB)
  Receive Date: 20140318
  Receipt Date: 20140321
  Transmission Date: 20141002
  Serious: Yes (Other)
  Sender: FDA-Public Use
  Company Number: PHFR2014GB002231

PATIENT
  Age: 41 Year
  Sex: Male

DRUGS (2)
  1. CLOZARIL [Suspect]
     Indication: SCHIZOPHRENIA
     Dosage: UNK
     Route: 048
     Dates: start: 20100426
  2. CLOZARIL [Suspect]
     Dosage: UNK
     Dates: start: 20140314

REACTIONS (3)
  - Diabetes mellitus inadequate control [Unknown]
  - Weight decreased [Unknown]
  - Neutrophil count decreased [Recovered/Resolved]
